FAERS Safety Report 13950677 (Version 1)
Quarter: 2017Q3

REPORT INFORMATION
  Report Type: Spontaneous
  Country: US (occurrence: US)
  Receive Date: 20170908
  Receipt Date: 20170908
  Transmission Date: 20171128
  Serious: Yes (Other)
  Sender: FDA-Public Use
  Company Number: US-ROCHE-1221719

PATIENT
  Sex: Male

DRUGS (2)
  1. BENADRYL [Concomitant]
     Active Substance: DIPHENHYDRAMINE HYDROCHLORIDE
  2. RITUXAN [Suspect]
     Active Substance: RITUXIMAB
     Indication: WALDENSTROM^S MACROGLOBULINAEMIA
     Route: 065
     Dates: start: 20130428

REACTIONS (7)
  - Chills [Unknown]
  - Dyspnoea [Unknown]
  - Night sweats [Unknown]
  - Pain [Unknown]
  - Pyrexia [Unknown]
  - Pharyngeal oedema [Unknown]
  - Hypotension [Unknown]
